FAERS Safety Report 8076217-4 (Version None)
Quarter: 2012Q1

REPORT INFORMATION
  Report Type: 
  Country: None (occurrence: None)
  Receive Date: 20120127
  Receipt Date: 20120120
  Transmission Date: 20120608
  Serious: Yes (Hospitalization)
  Sender: FDA-Public Use
  Company Number: FR-PFIZER INC-2009233435

PATIENT
  Age: 75 Year
  Sex: Female

DRUGS (16)
  1. ATORVASTATIN [Suspect]
     Dosage: 10 MG, 1X/DAY
     Route: 048
  2. PULMICORT-100 [Suspect]
     Dosage: 1 DF, 2X/DAY/ 2 IU, DAILY
     Route: 055
  3. COUMADIN [Suspect]
     Dosage: 2 MG, 1X/DAY
     Route: 048
     Dates: start: 20081112
  4. SPIRIVA [Suspect]
     Dosage: 1 DF/ 18 UG,1X/DAY
     Route: 055
  5. COUMADIN [Suspect]
     Dosage: 4 MG, 1X/DAY
     Route: 048
     Dates: end: 20081106
  6. RAMIPRIL [Suspect]
     Dosage: 10 MG, 1X/DAY
     Route: 048
  7. LASIX [Suspect]
     Dosage: 60 MG, 1X/DAY
     Route: 048
     Dates: end: 20081105
  8. ZOLPIDEM [Suspect]
     Dosage: 1.5 DF/15 MG DAILY
     Route: 048
  9. RAMIPRIL [Suspect]
     Dosage: 5 MG, 1X/DAY
     Route: 048
     Dates: start: 20081107
  10. STABLON [Suspect]
     Dosage: 1 DF, 3X/DAY/ 37.5 MG DAILY
     Route: 048
  11. POTASSIUM CHLORIDE [Suspect]
     Dosage: 600 MG, 1X/DAY
     Route: 048
     Dates: end: 20081114
  12. COLCHICINE [Suspect]
     Dosage: 63.5 MG/1 TABLETS, 1X/DAY
     Route: 048
     Dates: start: 20081102, end: 20081102
  13. LASIX [Suspect]
     Dosage: 40 MG, 1X/DAY
     Route: 048
     Dates: start: 20081106
  14. COLCHICINE [Suspect]
     Indication: GOUT
     Dosage: 190.5 MG/3 TABLETS, 1X/DAY
     Route: 048
     Dates: start: 20081031, end: 20081031
  15. COLCHICINE [Suspect]
     Dosage: 127 MG/2 TABLETS, 1X/DAY
     Route: 048
     Dates: start: 20081101, end: 20081101
  16. BISOPROLOL FUMARATE [Suspect]
     Dosage: 5 MG, 1X/DAY
     Route: 048

REACTIONS (10)
  - DIARRHOEA [None]
  - NAUSEA [None]
  - ANTICOAGULATION DRUG LEVEL ABOVE THERAPEUTIC [None]
  - FATIGUE [None]
  - RENAL FAILURE [None]
  - VOMITING [None]
  - DEHYDRATION [None]
  - ERUCTATION [None]
  - DYSPEPSIA [None]
  - FOOD INTOLERANCE [None]
